FAERS Safety Report 7493124-6 (Version None)
Quarter: 2011Q2

REPORT INFORMATION
  Report Type: 
  Country: None (occurrence: None)
  Receive Date: 20110520
  Receipt Date: 20110513
  Transmission Date: 20111010
  Serious: Yes (Other)
  Sender: FDA-Public Use
  Company Number: BR-US-EMD SERONO, INC.-7058599

PATIENT
  Sex: Female
  Weight: 60 kg

DRUGS (7)
  1. TEGRETOL [Concomitant]
  2. LEXOTAN [Concomitant]
  3. ACETAMINOPHEN [Concomitant]
  4. VENLIFT [Concomitant]
  5. REBIF [Suspect]
     Indication: RELAPSING-REMITTING MULTIPLE SCLEROSIS
     Dates: start: 20071203
  6. SEROQUEL [Concomitant]
  7. DORFLEX [Concomitant]

REACTIONS (19)
  - BONE PAIN [None]
  - EATING DISORDER [None]
  - AMENORRHOEA [None]
  - MENORRHAGIA [None]
  - MYALGIA [None]
  - OVERWEIGHT [None]
  - DIARRHOEA [None]
  - HEADACHE [None]
  - DEPRESSED MOOD [None]
  - PAIN IN EXTREMITY [None]
  - MALAISE [None]
  - NAUSEA [None]
  - AMNESIA [None]
  - VISUAL IMPAIRMENT [None]
  - CENTRAL NERVOUS SYSTEM LESION [None]
  - NERVOUSNESS [None]
  - SOMNOLENCE [None]
  - VOMITING [None]
  - SUICIDE ATTEMPT [None]
